FAERS Safety Report 7124439-9 (Version None)
Quarter: 2010Q4

REPORT INFORMATION
  Report Type: 
  Country: None (occurrence: None)
  Receive Date: 20101126
  Receipt Date: 20101104
  Transmission Date: 20110411
  Serious: Yes (Other)
  Sender: FDA-Public Use
  Company Number: PHHO2010FR16727

PATIENT
  Sex: Male
  Weight: 55 kg

DRUGS (5)
  1. ZOLEDRONATE T29581+SOLINJ+BM [Suspect]
     Indication: METASTASES TO BONE
     Dosage: 3.3 MG
     Route: 042
     Dates: start: 20101022
  2. ZOLEDRONATE T29581+SOLINJ+BM [Suspect]
     Indication: BONE SARCOMA
  3. METHOTREXATE [Suspect]
     Dosage: 38.6 G
     Dates: start: 20101019
  4. CALCIUM [Concomitant]
  5. ALFACALCIDOL [Concomitant]

REACTIONS (4)
  - EYE ROLLING [None]
  - GRAND MAL CONVULSION [None]
  - LOSS OF CONSCIOUSNESS [None]
  - VISION BLURRED [None]
